FAERS Safety Report 10510826 (Version 2)
Quarter: 2015Q3

REPORT INFORMATION
  Report Type: Report from Study
  Country: BR (occurrence: BR)
  Receive Date: 20141010
  Receipt Date: 20150902
  Transmission Date: 20151125
  Serious: Yes (Other)
  Sender: FDA-Public Use
  Company Number: BR-ABBVIE-14P-020-1293843-00

PATIENT
  Age: 45 Year
  Sex: Female
  Weight: 80 kg

DRUGS (8)
  1. CYCLOBENZAPRINE HYDROCHLORIDE. [Concomitant]
     Active Substance: CYCLOBENZAPRINE HYDROCHLORIDE
     Indication: MYALGIA
  2. BIOFLAC [Concomitant]
     Route: 048
  3. VIMOVO [Concomitant]
     Active Substance: ESOMEPRAZOLE MAGNESIUM\NAPROXEN
     Indication: ARTHRALGIA
     Dosage: IF PAIN
     Dates: start: 20140817
  4. SYNTHROID [Suspect]
     Active Substance: LEVOTHYROXINE SODIUM
     Dosage: 50 MCG; 1 TABLET PER DAY AT 6:00 A.M
     Route: 048
  5. CYCLOBENZAPRINE HYDROCHLORIDE. [Concomitant]
     Active Substance: CYCLOBENZAPRINE HYDROCHLORIDE
     Indication: SPINAL OSTEOARTHRITIS
     Dosage: 5MG; AT NIGHT
     Route: 048
     Dates: start: 201401
  6. SYNTHROID [Suspect]
     Active Substance: LEVOTHYROXINE SODIUM
     Indication: THYROID NEOPLASM
     Dosage: 25 MCG; 1 TABLET PER DAY AT 6:00 A.M
     Route: 048
     Dates: start: 20140106
  7. BIOFLAC [Concomitant]
     Indication: PRODUCT USED FOR UNKNOWN INDICATION
     Dosage: 10 MG; AS NECESSARY
     Route: 048
     Dates: start: 201401
  8. CRESTOR [Concomitant]
     Active Substance: ROSUVASTATIN CALCIUM
     Indication: BLOOD CHOLESTEROL ABNORMAL
     Route: 048
     Dates: start: 201401, end: 201404

REACTIONS (1)
  - Vascular operation [Recovered/Resolved]

NARRATIVE: CASE EVENT DATE: 20140816
